FAERS Safety Report 9819572 (Version 1)
Quarter: 2014Q1

REPORT INFORMATION
  Report Type: Spontaneous
  Country: US (occurrence: None)
  Receive Date: 20140113
  Receipt Date: 20140113
  Transmission Date: 20141002
  Serious: No
  Sender: FDA-Public Use
  Company Number: 2014-00002

PATIENT
  Age: 64 Year
  Sex: Female

DRUGS (2)
  1. ZICAM COLD REMEDY NASAL GEL [Suspect]
     Indication: NASOPHARYNGITIS
     Dosage: 4 SWABS NASALLY DAILY
     Dates: start: 2009
  2. ZICAM COLD REMEDY NASAL GEL [Suspect]
     Indication: INFLUENZA
     Dosage: 4 SWABS NASALLY DAILY
     Dates: start: 2009

REACTIONS (1)
  - Anosmia [None]
